FAERS Safety Report 6109413-3 (Version None)
Quarter: 2009Q1

REPORT INFORMATION
  Report Type: 
  Country: None (occurrence: None)
  Receive Date: 20090310
  Receipt Date: 20090227
  Transmission Date: 20090719
  Serious: Yes (Other)
  Sender: FDA-Public Use
  Company Number: B0558798A

PATIENT
  Age: 52 Year
  Sex: Female
  Weight: 56 kg

DRUGS (2)
  1. SERETIDE [Suspect]
     Indication: ASTHMA
     Route: 065
     Dates: start: 20060701
  2. SALBUTAMOL [Concomitant]
     Dosage: 100MCG AS REQUIRED
     Route: 055
     Dates: start: 20050101

REACTIONS (2)
  - ASTHMA [None]
  - TREATMENT NONCOMPLIANCE [None]
